FAERS Safety Report 9344479 (Version 1)
Quarter: 2013Q2

REPORT INFORMATION
  Report Type: Spontaneous
  Country: US (occurrence: None)
  Receive Date: 20130611
  Receipt Date: 20130611
  Transmission Date: 20140414
  Serious: No
  Sender: FDA-Public Use
  Company Number: None

PATIENT
  Age: 27 Month
  Sex: Female
  Weight: 16.3 kg

DRUGS (1)
  1. TRILEPTAL [Suspect]
     Route: 048
     Dates: start: 201008

REACTIONS (4)
  - Convulsion [None]
  - Condition aggravated [None]
  - Therapeutic response unexpected with drug substitution [None]
  - Product substitution issue [None]
